FAERS Safety Report 15919250 (Version 1)
Quarter: 2019Q1

REPORT INFORMATION
  Report Type: Spontaneous
  Country: US (occurrence: US)
  Receive Date: 20190205
  Receipt Date: 20190205
  Transmission Date: 20190417
  Serious: Yes (Other)
  Sender: FDA-Public Use
  Company Number: US-ROCHE-2077535

PATIENT
  Sex: Female

DRUGS (3)
  1. PRAVACOL [Concomitant]
     Active Substance: PRAVASTATIN SODIUM
  2. PLAVIX [Concomitant]
     Active Substance: CLOPIDOGREL BISULFATE
  3. XOLAIR [Suspect]
     Active Substance: OMALIZUMAB
     Indication: IDIOPATHIC URTICARIA
     Dosage: ONGOING
     Route: 058
     Dates: start: 20170503

REACTIONS (1)
  - Urticaria [Unknown]
